FAERS Safety Report 7800615-4 (Version None)
Quarter: 2011Q4

REPORT INFORMATION
  Report Type: 
  Country: None (occurrence: None)
  Receive Date: 20111006
  Receipt Date: 20110930
  Transmission Date: 20120403
  Serious: Yes (Other)
  Sender: FDA-Public Use
  Company Number: TW-ABBOTT-11P-153-0850475-00

PATIENT
  Sex: Female
  Weight: 62.5 kg

DRUGS (3)
  1. ESTAZOLAM [Concomitant]
     Indication: PRODUCT USED FOR UNKNOWN INDICATION
  2. DEPAKENE [Suspect]
     Indication: BIPOLAR I DISORDER
     Dosage: 1500MILLIGRAM (S) DAILY
     Route: 048
     Dates: start: 20080804, end: 20100427
  3. QUETIAPINE [Concomitant]
     Indication: BIPOLAR I DISORDER
     Dosage: 300 MG DAILY
     Route: 048

REACTIONS (4)
  - IRRITABILITY [None]
  - HYPERAMMONAEMIA [None]
  - ALTERED STATE OF CONSCIOUSNESS [None]
  - DELIRIUM [None]
